FAERS Safety Report 18918522 (Version 1)
Quarter: 2021Q1

REPORT INFORMATION
  Report Type: Report from Study
  Country: JP (occurrence: JP)
  Receive Date: 20210219
  Receipt Date: 20210219
  Transmission Date: 20210420
  Serious: Yes (Hospitalization, Other)
  Sender: FDA-Public Use
  Company Number: JP-CELLTRION INC.-2021JP001857

PATIENT

DRUGS (8)
  1. CT?P13 [Suspect]
     Active Substance: INFLIXIMAB-DYYB
     Indication: CROHN^S DISEASE
     Dosage: 500 MG (WEIGHT: 50 KG)
     Route: 041
     Dates: start: 20181010, end: 20181010
  2. CT?P13 [Suspect]
     Active Substance: INFLIXIMAB-DYYB
     Dosage: 295 MG (WEIGHT: 60 KG)
     Route: 041
     Dates: start: 20200927, end: 20200927
  3. AZATHIOPRINE. [Concomitant]
     Active Substance: AZATHIOPRINE
     Dosage: 50 MG/DAY
     Route: 048
     Dates: start: 20170124, end: 20200801
  4. CT?P13 [Suspect]
     Active Substance: INFLIXIMAB-DYYB
     Dosage: 490 MG (WEIGHT: 49 KG)
     Route: 041
     Dates: start: 20181202, end: 20181202
  5. MESALAZINE [Concomitant]
     Active Substance: MESALAMINE
     Dosage: 2000 MG/DAY
     Route: 048
  6. CT?P13 [Suspect]
     Active Substance: INFLIXIMAB-DYYB
     Dosage: 245 MG (WEIGHT: 49 KG)
     Route: 041
     Dates: start: 20190203, end: 20190203
  7. CT?P13 [Suspect]
     Active Substance: INFLIXIMAB-DYYB
     Dosage: 270 MG (WEIGHT: 54 KG)
     Route: 041
     Dates: start: 20190922, end: 20190922
  8. CT?P13 [Suspect]
     Active Substance: INFLIXIMAB-DYYB
     Dosage: 245 MG (WEIGHT: 49 KG)
     Route: 041
     Dates: start: 20190331, end: 20190331

REACTIONS (10)
  - Enterocolitis [Recovered/Resolved]
  - Overdose [Unknown]
  - Gastroenteritis [Recovered/Resolved]
  - Headache [Not Recovered/Not Resolved]
  - Anaemia [Recovered/Resolved]
  - Abdominal pain upper [Recovered/Resolved]
  - Stomatitis [Recovered/Resolved]
  - Off label use [Unknown]
  - Underdose [Unknown]
  - Ileus [Recovered/Resolved]

NARRATIVE: CASE EVENT DATE: 20190303
